FAERS Safety Report 4444715-8 (Version None)
Quarter: 2004Q3

REPORT INFORMATION
  Report Type: 
  Country: None (occurrence: None)
  Receive Date: 20040902
  Receipt Date: 20040816
  Transmission Date: 20050211
  Serious: Yes (Death, Hospitalization)
  Sender: FDA-Public Use
  Company Number: ATO-04-0780

PATIENT

DRUGS (1)
  1. TRISENOX [Suspect]

REACTIONS (1)
  - SUDDEN DEATH [None]
